FAERS Safety Report 7596113-6 (Version None)
Quarter: 2011Q3

REPORT INFORMATION
  Report Type: 
  Country: None (occurrence: None)
  Receive Date: 20110707
  Receipt Date: 20110630
  Transmission Date: 20111222
  Serious: Yes (Other)
  Sender: FDA-Public Use
  Company Number: US-ABBOTT-11P-163-0836101-00

PATIENT
  Age: 50 Year
  Sex: Female

DRUGS (2)
  1. UNKNOWN NSAID [Suspect]
     Indication: PRODUCT USED FOR UNKNOWN INDICATION
     Dosage: SHORT TERM USAGE
  2. HUMIRA [Suspect]
     Indication: RHEUMATOID ARTHRITIS
     Route: 058

REACTIONS (2)
  - TUBULOINTERSTITIAL NEPHRITIS [None]
  - RENAL FAILURE ACUTE [None]
